FAERS Safety Report 16216806 (Version 3)
Quarter: 2019Q3

REPORT INFORMATION
  Report Type: Spontaneous
  Country: CZ (occurrence: CZ)
  Receive Date: 20190419
  Receipt Date: 20190920
  Transmission Date: 20191004
  Serious: Yes (Other)
  Sender: FDA-Public Use
  Company Number: CZ-ACCORD-122436

PATIENT
  Sex: Male

DRUGS (3)
  1. CAPECITABINE. [Concomitant]
     Active Substance: CAPECITABINE
     Indication: RECTAL CANCER
     Dosage: 3-0-3?1500 MG /2 X PER DAY?STRENGTH: 500 MG
     Route: 048
     Dates: start: 201606
  2. AVASTIN [Concomitant]
     Active Substance: BEVACIZUMAB
     Indication: METASTATIC NEOPLASM
     Dates: start: 201703
  3. OXALIPLATIN. [Suspect]
     Active Substance: OXALIPLATIN
     Indication: METASTATIC NEOPLASM
     Dates: start: 201703

REACTIONS (1)
  - Neuropathy peripheral [Not Recovered/Not Resolved]

NARRATIVE: CASE EVENT DATE: 201703
